FAERS Safety Report 6137502-6 (Version None)
Quarter: 2009Q1

REPORT INFORMATION
  Report Type: 
  Country: None (occurrence: None)
  Receive Date: 20090326
  Receipt Date: 20090316
  Transmission Date: 20090719
  Serious: Yes (Other)
  Sender: FDA-Public Use
  Company Number: GXKR2009IN03352

PATIENT
  Age: 14 Year
  Sex: Male

DRUGS (2)
  1. VINCRISTINE [Suspect]
     Indication: ACUTE LYMPHOCYTIC LEUKAEMIA
     Dosage: 1.5 MG/M2,
  2. FLUCONAZOLE [Suspect]

REACTIONS (8)
  - AREFLEXIA [None]
  - ASPIRATION [None]
  - AXONAL NEUROPATHY [None]
  - DYSPHONIA [None]
  - NEUROPATHY PERIPHERAL [None]
  - PNEUMONIA [None]
  - STRIDOR [None]
  - VOCAL CORD PARALYSIS [None]
